FAERS Safety Report 13862799 (Version 3)
Quarter: 2019Q1

REPORT INFORMATION
  Report Type: Spontaneous
  Country: IT (occurrence: IT)
  Receive Date: 20170814
  Receipt Date: 20190208
  Transmission Date: 20190417
  Serious: Yes (Other)
  Sender: FDA-Public Use
  Company Number: IT-ACCORD-057014

PATIENT
  Age: 38 Year
  Sex: Female

DRUGS (3)
  1. FOLLICLE STIMULATING HORMONE [Suspect]
     Active Substance: FOLLITROPIN
     Indication: CONTROLLED OVARIAN STIMULATION
     Dosage: DAY 5
  2. LETROZOLE. [Suspect]
     Active Substance: LETROZOLE
     Indication: CONTROLLED OVARIAN STIMULATION
     Dosage: DAY 3
  3. DECAPEPTYL [Concomitant]
     Active Substance: TRIPTORELIN
     Route: 040

REACTIONS (1)
  - Progesterone increased [Unknown]
